FAERS Safety Report 11926005 (Version 1)
Quarter: 2016Q1

REPORT INFORMATION
  Report Type: Spontaneous
  Country: US (occurrence: US)
  Receive Date: 20160119
  Receipt Date: 20160119
  Transmission Date: 20160526
  Serious: Yes (Other)
  Sender: FDA-Public Use
  Company Number: US-JNJCP-30000314279

PATIENT
  Sex: Female
  Weight: 95 kg

DRUGS (11)
  1. MULTI B VITAMIN [Concomitant]
     Indication: ROUTINE HEALTH MAINTENANCE
     Dosage: ONCE A DAY, AROUND 20 YEARS
  2. VHEA (SIC) [Concomitant]
     Indication: ROUTINE HEALTH MAINTENANCE
     Dosage: ONCE A DAY, AROUND 20 YEARS
  3. OMEGA 369 [Concomitant]
     Active Substance: FISH OIL
     Indication: ROUTINE HEALTH MAINTENANCE
     Dosage: ONCE A DAY, AROUND 20 YEARS
  4. GLUCOSAMINE CHONDRIOTIN [Concomitant]
     Indication: ROUTINE HEALTH MAINTENANCE
     Dosage: ONCE A DAY, AROUND 20 YEARS
  5. 5 HYDROXYTRYPTOPHAN [Concomitant]
     Indication: ROUTINE HEALTH MAINTENANCE
     Dosage: ONCE A DAY, AROUND 20 YEARS
  6. DAILY HAIR SKIN NAIL VITAMIN [Concomitant]
     Indication: ROUTINE HEALTH MAINTENANCE
     Dosage: ONCE A DAY, AROUND 20 YEARS
  7. VITAMIN E [Concomitant]
     Active Substance: .ALPHA.-TOCOPHEROL
     Indication: ROUTINE HEALTH MAINTENANCE
     Dosage: ONCE A DAY, AROUND 20 YEARS
  8. CLEAN + CLEAR SKINCARE PRODUCTS [Suspect]
     Active Substance: UNSPECIFIED INGREDIENT
     Indication: REMOVAL OF INERT MATTER FROM SKIN OR SUBCUTANEOUS TISSUE
     Dosage: THE ENTIRE PUMPS WORTH, ONCE A DAY
     Route: 061
  9. VITAMIN D [Concomitant]
     Active Substance: CHOLECALCIFEROL
     Indication: ROUTINE HEALTH MAINTENANCE
     Dosage: ONCE A DAY, AROUND 20 YEARS
  10. FOLIC ACID. [Concomitant]
     Active Substance: FOLIC ACID
     Indication: ROUTINE HEALTH MAINTENANCE
     Dosage: ONCE A DAY, AROUND 20 YEARS
  11. MILKY OATS [Concomitant]
     Indication: ROUTINE HEALTH MAINTENANCE
     Dosage: ONCE A DAY, AROUND 20 YEARS

REACTIONS (4)
  - Product container issue [Unknown]
  - Visual impairment [Not Recovered/Not Resolved]
  - Accidental exposure to product [Recovering/Resolving]
  - Corneal abrasion [Recovering/Resolving]

NARRATIVE: CASE EVENT DATE: 20151113
